FAERS Safety Report 10012210 (Version 1)
Quarter: 2014Q1

REPORT INFORMATION
  Report Type: Spontaneous
  Country: KR (occurrence: KR)
  Receive Date: 20140314
  Receipt Date: 20140314
  Transmission Date: 20141002
  Serious: Yes (Death, Other)
  Sender: FDA-Public Use
  Company Number: PHHY2014KR027645

PATIENT
  Age: 65 Year
  Sex: Male

DRUGS (7)
  1. AMIODARONE [Suspect]
     Indication: ATRIAL FIBRILLATION
     Dosage: 400 MG, PER DAY
  2. AMIODARONE [Suspect]
     Indication: VENTRICULAR TACHYCARDIA
  3. ASPIRIN [Concomitant]
  4. NICORANDIL [Concomitant]
  5. DILTIAZEM [Concomitant]
  6. VALSARTAN [Concomitant]
  7. WARFARIN [Concomitant]

REACTIONS (14)
  - Sudden cardiac death [Fatal]
  - Aspergillus test positive [Unknown]
  - Staphylococcus test positive [Unknown]
  - Mycobacterium avium complex infection [Unknown]
  - Acute respiratory distress syndrome [Recovering/Resolving]
  - Hyperthyroidism [Unknown]
  - Pulmonary toxicity [Unknown]
  - Organising pneumonia [Unknown]
  - Pyrexia [Unknown]
  - Cough [Unknown]
  - Dyspnoea [Unknown]
  - Weight decreased [Unknown]
  - Haemoptysis [Unknown]
  - Asthenia [Unknown]
